FAERS Safety Report 4638978-3 (Version None)
Quarter: 2005Q2

REPORT INFORMATION
  Report Type: 
  Country: None (occurrence: None)
  Receive Date: 20050419
  Receipt Date: 20050126
  Transmission Date: 20051028
  Serious: Yes (Hospitalization)
  Sender: FDA-Public Use
  Company Number: US-MERCK-0501USA04298

PATIENT
  Age: 44 Year
  Sex: Male
  Weight: 94 kg

DRUGS (10)
  1. VIOXX [Suspect]
     Indication: ARTHRITIS
     Route: 048
     Dates: start: 20010601
  2. VIOXX [Suspect]
     Route: 048
     Dates: end: 20011226
  3. VIOXX [Suspect]
     Indication: ARTHRALGIA
     Route: 048
     Dates: start: 20010601
  4. VIOXX [Suspect]
     Route: 048
     Dates: end: 20011226
  5. TYLENOL (CAPLET) [Concomitant]
     Route: 065
     Dates: start: 19990101
  6. ADVIL [Concomitant]
     Route: 065
     Dates: start: 19990101
  7. LIPITOR [Concomitant]
     Indication: HYPERCHOLESTEROLAEMIA
     Route: 065
     Dates: start: 20000101
  8. ASPIRIN [Concomitant]
     Route: 065
     Dates: start: 20010101
  9. ACCUPRIL [Concomitant]
     Route: 065
     Dates: start: 20010101
  10. METOPROLOL [Concomitant]
     Route: 065
     Dates: start: 20010101

REACTIONS (5)
  - AMNESIA [None]
  - BRAIN DAMAGE [None]
  - MYOCARDIAL INFARCTION [None]
  - NERVE INJURY [None]
  - TRANSIENT ISCHAEMIC ATTACK [None]
